FAERS Safety Report 15894135 (Version 1)
Quarter: 2019Q1

REPORT INFORMATION
  Report Type: Spontaneous
  Country: US (occurrence: US)
  Receive Date: 20190108
  Receipt Date: 20190108
  Transmission Date: 20190417
  Serious: No
  Sender: FDA-Public Use
  Company Number: None

PATIENT
  Age: 52 Year
  Sex: Female
  Weight: 67.13 kg

DRUGS (1)
  1. BENLYSTA [Suspect]
     Active Substance: BELIMUMAB
     Indication: SYSTEMIC LUPUS ERYTHEMATOSUS
     Dosage: IUSE 675.45 MG VIA INTRAVENOUSLY OVER 1 HR ON DAY 1, DAY 14 AS DIRECTED
     Route: 042
     Dates: start: 201607

REACTIONS (1)
  - Influenza [None]
